FAERS Safety Report 4881688-8 (Version None)
Quarter: 2006Q1

REPORT INFORMATION
  Report Type: 
  Country: None (occurrence: None)
  Receive Date: 20060116
  Receipt Date: 20060106
  Transmission Date: 20060701
  Serious: Yes (Death)
  Sender: FDA-Public Use
  Company Number: JP-JNJFOC-20051105658

PATIENT
  Age: 62 Year
  Sex: Female

DRUGS (1)
  1. ITRIZOLE [Suspect]
     Route: 048

REACTIONS (1)
  - PULMONARY EMBOLISM [None]
